FAERS Safety Report 12481950 (Version 2)
Quarter: 2016Q2

REPORT INFORMATION
  Report Type: Spontaneous
  Country: FI (occurrence: FI)
  Receive Date: 20160620
  Receipt Date: 20160627
  Transmission Date: 20160815
  Serious: Yes (Life-Threatening, Hospitalization, Other)
  Sender: FDA-Public Use
  Company Number: FI-PFIZER INC-2016298341

PATIENT
  Age: 46 Year
  Sex: Male

DRUGS (3)
  1. TEMESTA [Suspect]
     Active Substance: LORAZEPAM
     Indication: ANXIETY
  2. CITALOPRAM [Suspect]
     Active Substance: CITALOPRAM HYDROBROMIDE
     Indication: OBSESSIVE-COMPULSIVE SYMPTOM
  3. LEPONEX [Suspect]
     Active Substance: CLOZAPINE
     Indication: SCHIZOAFFECTIVE DISORDER

REACTIONS (8)
  - Intentional overdose [Unknown]
  - Anuria [Recovering/Resolving]
  - Loss of consciousness [Unknown]
  - Renal injury [Not Recovered/Not Resolved]
  - Suicidal behaviour [Recovered/Resolved]
  - Tangentiality [Unknown]
  - Rhabdomyolysis [Unknown]
  - Suicide attempt [Unknown]

NARRATIVE: CASE EVENT DATE: 201605
